FAERS Safety Report 7630629 (Version 3)
Quarter: 2014Q4

REPORT INFORMATION
  Report Type: Spontaneous
  Country: US (occurrence: US)
  Receive Date: 20101015
  Receipt Date: 20141222
  Transmission Date: 20150529
  Serious: Yes (Other)
  Sender: FDA-Public Use
  Company Number: US-JNJFOC-20100604213

PATIENT
  Age: 53 Year
  Sex: Female

DRUGS (1)
  1. LEVAQUIN [Suspect]
     Active Substance: LEVOFLOXACIN
     Indication: INFECTION
     Route: 048

REACTIONS (6)
  - Bursitis [Unknown]
  - Joint injury [Unknown]
  - Rotator cuff syndrome [Recovering/Resolving]
  - Tendonitis [Unknown]
  - Rotator cuff syndrome [Unknown]
  - Tendon disorder [Unknown]

NARRATIVE: CASE EVENT DATE: 200806
